FAERS Safety Report 7383940-3 (Version None)
Quarter: 2011Q1

REPORT INFORMATION
  Report Type: 
  Country: None (occurrence: None)
  Receive Date: 20110330
  Receipt Date: 20110324
  Transmission Date: 20110831
  Serious: Yes (Death, Other)
  Sender: FDA-Public Use
  Company Number: JP-PFIZER INC-2009305273

PATIENT
  Age: 61 Year
  Sex: Male

DRUGS (6)
  1. MAGNESIUM OXIDE [Concomitant]
     Dosage: UNK
     Route: 048
     Dates: start: 20090821
  2. SUNITINIB MALATE [Suspect]
     Indication: GASTROINTESTINAL STROMAL TUMOUR
     Dosage: 37.5 MG, 1X/DAY
     Route: 048
     Dates: start: 20090806, end: 20090924
  3. KERATINAMIN [Concomitant]
     Dosage: UNK
     Route: 062
     Dates: start: 20090812
  4. LOXOPROFEN [Concomitant]
     Dosage: UNK
     Route: 048
     Dates: start: 20090821
  5. PARIET [Concomitant]
     Dosage: UNK
     Route: 048
     Dates: start: 20090821
  6. GASMOTIN [Concomitant]
     Dosage: UNK
     Route: 048
     Dates: start: 20090821

REACTIONS (4)
  - GASTROINTESTINAL STROMAL TUMOUR [None]
  - HYPERAMMONAEMIA [None]
  - DISEASE PROGRESSION [None]
  - HEPATIC ENCEPHALOPATHY [None]
